FAERS Safety Report 5063265-1 (Version None)
Quarter: 2006Q3

REPORT INFORMATION
  Report Type: 
  Country: None (occurrence: None)
  Receive Date: 20060703
  Receipt Date: 20060505
  Transmission Date: 20061208
  Serious: No
  Sender: FDA-Public Use
  Company Number: 2006PV013357

PATIENT
  Age: 57 Year
  Sex: Female
  Weight: 128.8216 kg

DRUGS (3)
  1. SYMLIN [Suspect]
     Indication: DIABETES MELLITUS NON-INSULIN-DEPENDENT
     Dosage: 120 MCG; TID; SC
     Route: 058
     Dates: start: 20060301
  2. LEVEMIR [Concomitant]
  3. NOVOLOG [Concomitant]

REACTIONS (1)
  - ALOPECIA [None]
